FAERS Safety Report 5729601-5 (Version None)
Quarter: 2008Q2

REPORT INFORMATION
  Report Type: 
  Country: None (occurrence: None)
  Receive Date: 20080506
  Receipt Date: 20080430
  Transmission Date: 20081010
  Serious: Yes (Hospitalization, Other)
  Sender: FDA-Public Use
  Company Number: US-MERCK-0706USA00454

PATIENT
  Age: 56 Year
  Sex: Female
  Weight: 47 kg

DRUGS (5)
  1. FOSAMAX [Suspect]
     Indication: OSTEOPOROSIS
     Route: 048
     Dates: start: 19980101, end: 20010901
  2. FOSAMAX [Suspect]
     Route: 048
     Dates: start: 20010901, end: 20060501
  3. SYNTHROID [Concomitant]
     Indication: HYPOTHYROIDISM
     Route: 065
     Dates: start: 19780101
  4. LIPITOR [Concomitant]
     Indication: BLOOD CHOLESTEROL
     Route: 065
     Dates: start: 19980101
  5. ZOCOR [Concomitant]
     Indication: BLOOD CHOLESTEROL
     Route: 065
     Dates: start: 19980101

REACTIONS (25)
  - ANXIETY [None]
  - APHTHOUS STOMATITIS [None]
  - BACK PAIN [None]
  - BONE GRAFT [None]
  - CATARACT [None]
  - CONVULSION [None]
  - CYANOSIS [None]
  - DENTAL CARIES [None]
  - FACIAL NEURALGIA [None]
  - HYPERTENSION [None]
  - IMPAIRED HEALING [None]
  - INJURY [None]
  - JAW CYST [None]
  - LOSS OF CONSCIOUSNESS [None]
  - MELANOCYTIC NAEVUS [None]
  - MITRAL VALVE INCOMPETENCE [None]
  - MUSCULOSKELETAL PAIN [None]
  - NASAL SEPTUM DEVIATION [None]
  - NERVOUS SYSTEM DISORDER [None]
  - ORAL INFECTION [None]
  - ORAL PAIN [None]
  - OSTEONECROSIS [None]
  - PAIN IN EXTREMITY [None]
  - SINUSITIS [None]
  - VARICOSE VEIN [None]
